FAERS Safety Report 6505195-1 (Version None)
Quarter: 2009Q4

REPORT INFORMATION
  Report Type: 
  Country: None (occurrence: None)
  Receive Date: 20091218
  Receipt Date: 20091214
  Transmission Date: 20100525
  Serious: Yes (Death)
  Sender: FDA-Public Use
  Company Number: PHHO2009DE05334

PATIENT
  Sex: Female
  Weight: 64.5 kg

DRUGS (4)
  1. MYFORTIC [Suspect]
     Indication: RENAL TRANSPLANT
     Dosage: 360 MG, BID
     Dates: start: 20081009
  2. SANDIMMUNE [Suspect]
     Indication: RENAL TRANSPLANT
     Dosage: 30 MG, BID
     Dates: start: 20081009
  3. NO TREATMENT RECEIVED NOMED [Suspect]
     Indication: RENAL TRANSPLANT
     Dosage: 30 MG, BID
     Route: 048
     Dates: start: 20081009
  4. URBASON [Suspect]
     Indication: RENAL TRANSPLANT
     Dosage: 2 MG, QD
     Dates: start: 20081009

REACTIONS (1)
  - CARDIAC FAILURE ACUTE [None]
